FAERS Safety Report 18594717 (Version 1)
Quarter: 2020Q4

REPORT INFORMATION
  Report Type: Spontaneous
  Country: US (occurrence: US)
  Receive Date: 20201209
  Receipt Date: 20201209
  Transmission Date: 20210114
  Serious: No
  Sender: FDA-Public Use
  Company Number: US-TEVA-2020-US-1857489

PATIENT
  Age: 80 Year
  Sex: Female
  Weight: 92.53 kg

DRUGS (2)
  1. FLECTOR [Concomitant]
     Active Substance: DICLOFENAC EPOLAMINE
     Indication: PAIN
     Dosage: ONE PATCH ONCE A DAY, SOMETIMES TWICE A DAY
     Route: 062
  2. LIDOCAINE ACTAVIS [Suspect]
     Active Substance: LIDOCAINE
     Route: 062

REACTIONS (2)
  - Drug ineffective [Unknown]
  - Product adhesion issue [Unknown]
